FAERS Safety Report 9252275 (Version 1)
Quarter: 2013Q1

REPORT INFORMATION
  Report Type: Spontaneous
  Country: US (occurrence: None)
  Receive Date: 20130305
  Receipt Date: 20130305
  Transmission Date: 20140127
  Serious: Yes (Other)
  Sender: FDA-Public Use
  Company Number: 163-21880-12083341

PATIENT
  Age: 60 Year
  Sex: Male

DRUGS (5)
  1. REVLIMID (LENALIDOMIDE) (25 MILLIGRAM, CAPSULES) [Suspect]
     Dosage: 25 MG, 1 IN 1 D, PO
     Route: 048
     Dates: start: 20120809
  2. ASA (ACETYLSALICYLIC ACID) [Suspect]
  3. BARACLUDE (ENTECAVIR) [Suspect]
  4. METOPROLOL (METOPROLOL) [Suspect]
  5. AMLODIPINE (AMLODIPINE) [Suspect]

REACTIONS (3)
  - Hypersensitivity [None]
  - Swelling face [None]
  - Rash generalised [None]
